FAERS Safety Report 4742667-4 (Version None)
Quarter: 2005Q3

REPORT INFORMATION
  Report Type: 
  Country: None (occurrence: None)
  Receive Date: 20050811
  Receipt Date: 20050802
  Transmission Date: 20060218
  Serious: Yes (Other)
  Sender: FDA-Public Use
  Company Number: US-JNJFOC-20050801045

PATIENT
  Age: 76 Year
  Sex: Male
  Weight: 81.65 kg

DRUGS (5)
  1. RAZADYNE [Suspect]
     Route: 048
  2. UROXATRAL [Concomitant]
     Indication: DRUG USE FOR UNKNOWN INDICATION
     Route: 048
  3. VESICARE [Concomitant]
     Indication: DRUG USE FOR UNKNOWN INDICATION
     Route: 048
  4. LIPITOR [Concomitant]
     Route: 048
  5. SYNTHROID [Concomitant]
     Indication: DRUG USE FOR UNKNOWN INDICATION
     Route: 065

REACTIONS (1)
  - HEPATIC ENZYME INCREASED [None]
